FAERS Safety Report 6188433-7 (Version None)
Quarter: 2009Q2

REPORT INFORMATION
  Report Type: 
  Country: None (occurrence: None)
  Receive Date: 20090513
  Receipt Date: 20090506
  Transmission Date: 20091009
  Serious: Yes (Other)
  Sender: FDA-Public Use
  Company Number: US-JNJFOC-20061006825

PATIENT
  Sex: Male

DRUGS (1)
  1. RISPERDAL [Suspect]
     Indication: BIPOLAR I DISORDER

REACTIONS (8)
  - BLINDNESS UNILATERAL [None]
  - CEREBELLAR SYNDROME [None]
  - CEREBROVASCULAR ACCIDENT [None]
  - DIABETES MELLITUS [None]
  - DIABETIC NEUROPATHY [None]
  - GLYCOSYLATED HAEMOGLOBIN INCREASED [None]
  - MALAISE [None]
  - VISION BLURRED [None]
